FAERS Safety Report 25851479 (Version 1)
Quarter: 2025Q3

REPORT INFORMATION
  Report Type: Spontaneous
  Country: EU (occurrence: EU)
  Receive Date: 20250926
  Receipt Date: 20250926
  Transmission Date: 20251021
  Serious: Yes (Other)
  Sender: MYLAN
  Company Number: EU-MYLANLABS-2025M1081582

PATIENT
  Age: 42 Year
  Sex: Female

DRUGS (12)
  1. CYCLOSPORINE [Suspect]
     Active Substance: CYCLOSPORINE
     Indication: Systemic lupus erythematosus
  2. CYCLOSPORINE [Suspect]
     Active Substance: CYCLOSPORINE
  3. AZATHIOPRINE [Suspect]
     Active Substance: AZATHIOPRINE
     Indication: Systemic lupus erythematosus
  4. AZATHIOPRINE [Suspect]
     Active Substance: AZATHIOPRINE
  5. RITUXIMAB [Suspect]
     Active Substance: RITUXIMAB
     Indication: Systemic lupus erythematosus
  6. RITUXIMAB [Suspect]
     Active Substance: RITUXIMAB
  7. BELIMUMAB [Suspect]
     Active Substance: BELIMUMAB
     Indication: Systemic lupus erythematosus
     Dosage: 200 MILLIGRAM, QW
     Dates: start: 202006, end: 202208
  8. HYDROXYCHLOROQUINE [Suspect]
     Active Substance: HYDROXYCHLOROQUINE
     Indication: Systemic lupus erythematosus
     Dosage: 1-2 TIMES PER DAY, QD
     Dates: start: 202006, end: 202208
  9. HYDROXYCHLOROQUINE [Suspect]
     Active Substance: HYDROXYCHLOROQUINE
  10. PREDNISONE [Suspect]
     Active Substance: PREDNISONE
     Indication: Systemic lupus erythematosus
     Dosage: UNK, QD
     Dates: start: 202006, end: 202208
  11. PREDNISONE [Suspect]
     Active Substance: PREDNISONE
  12. ANIFROLUMAB [Suspect]
     Active Substance: ANIFROLUMAB
     Indication: Systemic lupus erythematosus
     Dosage: 300 MILLIGRAM, MONTHLY
     Dates: start: 202208, end: 202303

REACTIONS (2)
  - Drug ineffective [Unknown]
  - Off label use [Unknown]
